FAERS Safety Report 11641046 (Version 1)
Quarter: 2015Q4

REPORT INFORMATION
  Report Type: Spontaneous
  Country: US (occurrence: US)
  Receive Date: 20151019
  Receipt Date: 20151019
  Transmission Date: 20160304
  Serious: Yes (Other)
  Sender: FDA-Public Use
  Company Number: US-PFIZER INC-2015334548

PATIENT
  Sex: Male

DRUGS (2)
  1. CAFFEINE. [Concomitant]
     Active Substance: CAFFEINE
  2. ADVIL [Suspect]
     Active Substance: IBUPROFEN
     Dosage: UNK

REACTIONS (3)
  - Choking [Unknown]
  - Product shape issue [Unknown]
  - Foreign body [Unknown]
